FAERS Safety Report 6136574-2 (Version None)
Quarter: 2009Q1

REPORT INFORMATION
  Report Type: 
  Country: None (occurrence: None)
  Receive Date: 20090325
  Receipt Date: 20090303
  Transmission Date: 20090719
  Serious: Yes (Hospitalization, Other)
  Sender: FDA-Public Use
  Company Number: M-09-0193

PATIENT
  Age: 35 Year
  Sex: Male

DRUGS (5)
  1. DIVALPROEX SODIUM [Suspect]
     Indication: CONVULSION
     Dosage: 500 MG EVERY MORNING AND 250 MG EVERY EVENING, PO
     Route: 048
     Dates: end: 20090220
  2. DANTRIUM [Concomitant]
  3. CELEXA [Concomitant]
  4. MIRTAZAPINE [Concomitant]
  5. PROPRANOLOL [Concomitant]

REACTIONS (2)
  - ANTICONVULSANT DRUG LEVEL DECREASED [None]
  - CONVULSION [None]
